FAERS Safety Report 16430299 (Version 1)
Quarter: 2019Q2

REPORT INFORMATION
  Report Type: Spontaneous
  Country: PL (occurrence: PL)
  Receive Date: 20190614
  Receipt Date: 20190614
  Transmission Date: 20190711
  Serious: Yes (Other)
  Sender: FDA-Public Use
  Company Number: PL-ACCORD-132788

PATIENT
  Age: 67 Year
  Sex: Female
  Weight: 53 kg

DRUGS (3)
  1. FLUOROURACIL MEDAC [Suspect]
     Active Substance: FLUOROURACIL
     Indication: COLON CANCER
     Dosage: DOSE: 1420, THERAPY ONGOING
     Route: 042
     Dates: start: 20180919
  2. LEVOFOLIC [Concomitant]
     Active Substance: LEUCOVORIN
     Indication: COLON CANCER
     Dosage: THERAPY ONGOING
     Route: 042
     Dates: start: 20180919
  3. OXALIPLATIN ACCORD [Suspect]
     Active Substance: OXALIPLATIN
     Indication: COLON CANCER
     Route: 042
     Dates: start: 20180727, end: 20181119

REACTIONS (3)
  - Neutropenia [Recovering/Resolving]
  - Polyneuropathy [Recovering/Resolving]
  - Asthenia [Recovering/Resolving]

NARRATIVE: CASE EVENT DATE: 20190102
